FAERS Safety Report 13511519 (Version 1)
Quarter: 2017Q2

REPORT INFORMATION
  Report Type: Spontaneous
  Country: CA (occurrence: CA)
  Receive Date: 20170504
  Receipt Date: 20170504
  Transmission Date: 20170830
  Serious: Yes (Death)
  Sender: FDA-Public Use
  Company Number: CA-TEVA-765210ACC

PATIENT
  Age: 80 Year
  Sex: Male

DRUGS (14)
  1. SYMBICORT [Concomitant]
     Active Substance: BUDESONIDE\FORMOTEROL FUMARATE DIHYDRATE
  2. ZYMAR [Concomitant]
     Active Substance: GATIFLOXACIN
  3. CRESTOR [Concomitant]
     Active Substance: ROSUVASTATIN CALCIUM
  4. APO-AMLODIPINE [Concomitant]
     Active Substance: AMLODIPINE BESYLATE
  5. LANTUS SOLOSTAR [Concomitant]
     Active Substance: INSULIN GLARGINE
  6. OLMETEC [Concomitant]
     Active Substance: OLMESARTAN MEDOXOMIL
  7. PREDNISOLONE. [Concomitant]
     Active Substance: PREDNISOLONE
  8. SANDOZ METFORMIN FC [Concomitant]
     Active Substance: METFORMIN HYDROCHLORIDE
  9. WARFARIN [Suspect]
     Active Substance: WARFARIN
     Indication: VENOUS THROMBOSIS
     Route: 065
  10. OLMETEC [Concomitant]
     Active Substance: OLMESARTAN MEDOXOMIL
  11. ACUVAIL [Concomitant]
     Active Substance: KETOROLAC TROMETHAMINE
  12. PRADAXA KNOWN AS PRADAX [Concomitant]
     Active Substance: DABIGATRAN ETEXILATE MESYLATE
  13. APO-BISACODYL [Concomitant]
     Active Substance: BISACODYL
  14. TECTA [Concomitant]
     Active Substance: PANTOPRAZOLE MAGNESIUM

REACTIONS (3)
  - Tuberculosis [Fatal]
  - Vocal cord disorder [Fatal]
  - Tongue necrosis [Fatal]
